FAERS Safety Report 20758708 (Version 1)
Quarter: 2022Q2

REPORT INFORMATION
  Report Type: Spontaneous
  Country: US (occurrence: US)
  Receive Date: 20220427
  Receipt Date: 20220427
  Transmission Date: 20220720
  Serious: No
  Sender: FDA-Public Use
  Company Number: US-PFIZER INC-202101440400

PATIENT
  Age: 58 Year
  Sex: Female
  Weight: 64.41 kg

DRUGS (2)
  1. CHANTIX [Suspect]
     Active Substance: VARENICLINE TARTRATE
     Indication: Smoking cessation therapy
     Dosage: 5 MG
     Dates: start: 2019
  2. CHANTIX [Suspect]
     Active Substance: VARENICLINE TARTRATE
     Dosage: 1 MG
     Dates: start: 2019

REACTIONS (7)
  - Abdominal discomfort [Unknown]
  - Constipation [Unknown]
  - Abdominal pain [Unknown]
  - Abdominal distension [Unknown]
  - Off label use [Unknown]
  - Product use issue [Unknown]
  - Product prescribing error [Unknown]

NARRATIVE: CASE EVENT DATE: 20190101
